FAERS Safety Report 17573173 (Version 1)
Quarter: 2020Q1

REPORT INFORMATION
  Report Type: Spontaneous
  Country: US (occurrence: US)
  Receive Date: 20200323
  Receipt Date: 20200323
  Transmission Date: 20200409
  Serious: Yes (Hospitalization, Other)
  Sender: FDA-Public Use
  Company Number: US-NOVOPROD-719020

PATIENT
  Age: 74 Year
  Sex: Female

DRUGS (3)
  1. TRESIBA [Suspect]
     Active Substance: INSULIN DEGLUDEC
     Indication: DIABETES MELLITUS
     Dosage: 70 IU, QD
     Route: 058
  2. LANTUS [Suspect]
     Active Substance: INSULIN GLARGINE
     Indication: PRODUCT USED FOR UNKNOWN INDICATION
     Dosage: UNK
     Route: 058
  3. NOVOLOG [Suspect]
     Active Substance: INSULIN ASPART
     Indication: DIABETES MELLITUS
     Dosage: UNK
     Route: 058

REACTIONS (9)
  - Blood cholesterol increased [Unknown]
  - Stent placement [Unknown]
  - Dizziness [Unknown]
  - Headache [Unknown]
  - Arthritis [Not Recovered/Not Resolved]
  - Visual impairment [Unknown]
  - Rash pruritic [Unknown]
  - Sleep apnoea syndrome [Unknown]
  - Hypertension [Unknown]
